FAERS Safety Report 26117435 (Version 1)
Quarter: 2025Q4

REPORT INFORMATION
  Report Type: Spontaneous
  Country: US (occurrence: US)
  Receive Date: 20251203
  Receipt Date: 20251203
  Transmission Date: 20260118
  Serious: Yes (Other)
  Sender: MERCK SHARP & DOHME LLC
  Company Number: US-009507513-2355062

PATIENT
  Age: 67 Year
  Sex: Male

DRUGS (1)
  1. KEYTRUDA [Suspect]
     Active Substance: PEMBROLIZUMAB
     Indication: Squamous cell carcinoma of head and neck
     Route: 042
     Dates: start: 2025

REACTIONS (4)
  - Malignant neoplasm progression [Unknown]
  - Neoplasm swelling [Unknown]
  - Fatigue [Unknown]
  - Tumour exudation [Unknown]

NARRATIVE: CASE EVENT DATE: 20250101
